FAERS Safety Report 18588825 (Version 2)
Quarter: 2021Q1

REPORT INFORMATION
  Report Type: Spontaneous
  Country: US (occurrence: US)
  Receive Date: 20201208
  Receipt Date: 20210107
  Transmission Date: 20210419
  Serious: Yes (Other)
  Sender: FDA-Public Use
  Company Number: US-009507513-2012USA001863

PATIENT
  Age: 70 Year
  Sex: Male

DRUGS (3)
  1. AXITINIB [Concomitant]
     Active Substance: AXITINIB
     Dosage: 3 MILLIGRAM, AT BEDTIME
     Route: 048
     Dates: start: 20190726, end: 202001
  2. KEYTRUDA [Suspect]
     Active Substance: PEMBROLIZUMAB
     Indication: RENAL CELL CARCINOMA
     Dosage: 400 MG EVERY 6 WEEKS
     Route: 042
     Dates: start: 20190726
  3. KEYTRUDA [Suspect]
     Active Substance: PEMBROLIZUMAB
     Dosage: 200 MILLIGRAM, Q3W
     Route: 042

REACTIONS (1)
  - Immune-mediated nephritis [Recovered/Resolved]
